FAERS Safety Report 19161838 (Version 1)
Quarter: 2021Q2

REPORT INFORMATION
  Report Type: Spontaneous
  Country: CA (occurrence: CA)
  Receive Date: 20210421
  Receipt Date: 20210421
  Transmission Date: 20210717
  Serious: Yes (Death, Hospitalization)
  Sender: FDA-Public Use
  Company Number: CA-ROCHE-2811441

PATIENT
  Age: 32 Year
  Sex: Female

DRUGS (18)
  1. KEPPRA [Concomitant]
     Active Substance: LEVETIRACETAM
  2. PROCHLORAZINE [Concomitant]
  3. VITAMIN C [Concomitant]
     Active Substance: ASCORBIC ACID
  4. CORTEF [Concomitant]
     Active Substance: HYDROCORTISONE
  5. CALCIUM [Concomitant]
     Active Substance: CALCIUM
  6. METHYLPREDNISOLONE SODIUM SUCCINATE. [Concomitant]
     Active Substance: METHYLPREDNISOLONE SODIUM SUCCINATE
     Indication: PREMEDICATION
     Route: 042
  7. SYNTHROID [Concomitant]
     Active Substance: LEVOTHYROXINE SODIUM
  8. BEVACIZUMAB. [Suspect]
     Active Substance: BEVACIZUMAB
     Indication: GLIOBLASTOMA
     Route: 042
  9. ACETAMINOPHEN. [Concomitant]
     Active Substance: ACETAMINOPHEN
     Indication: PREMEDICATION
     Route: 048
  10. VIMPAT [Concomitant]
     Active Substance: LACOSAMIDE
  11. BEVACIZUMAB. [Suspect]
     Active Substance: BEVACIZUMAB
     Route: 042
  12. CISPLATIN. [Concomitant]
     Active Substance: CISPLATIN
     Route: 042
  13. DEXAMETHASONE. [Concomitant]
     Active Substance: DEXAMETHASONE
     Route: 065
  14. ETOPOSIDE. [Concomitant]
     Active Substance: ETOPOSIDE
  15. SALBUTAMOL [Concomitant]
     Active Substance: ALBUTEROL
     Route: 065
  16. DIPHENHYDRAMINE. [Concomitant]
     Active Substance: DIPHENHYDRAMINE
     Indication: PREMEDICATION
     Route: 048
  17. FLOVENT [Concomitant]
     Active Substance: FLUTICASONE PROPIONATE
     Route: 065
  18. ONDANSETRON [Concomitant]
     Active Substance: ONDANSETRON

REACTIONS (2)
  - Central nervous system infection [Fatal]
  - Cerebral disorder [Fatal]
